FAERS Safety Report 10179905 (Version 1)
Quarter: 2014Q2

REPORT INFORMATION
  Report Type: Spontaneous
  Country: FR (occurrence: FR)
  Receive Date: 20140519
  Receipt Date: 20140519
  Transmission Date: 20141212
  Serious: Yes (Life-Threatening)
  Sender: FDA-Public Use
  Company Number: FR-BAYER-2014-067733

PATIENT
  Age: 63 Year
  Sex: Male

DRUGS (12)
  1. CIFLOX [Suspect]
     Dosage: 500 G, QD
     Route: 048
     Dates: start: 20140317, end: 20140411
  2. VANCOMYCIN [Suspect]
     Dosage: 2 G, QD
     Route: 042
     Dates: start: 20140315, end: 20140405
  3. INEXIUM [Suspect]
     Dosage: 40 MG, QD
     Route: 048
     Dates: start: 20140303, end: 20140411
  4. XANAX [Suspect]
     Dosage: 0.25 MG, QD
     Route: 048
     Dates: start: 20140330, end: 20140411
  5. AUGMENTIN [Concomitant]
     Dosage: UNK
     Route: 042
     Dates: start: 20140308, end: 20140317
  6. FLAGYL [Concomitant]
     Dosage: 1.5 G, QD
     Route: 048
     Dates: start: 20140407, end: 20140411
  7. ZOPICLONE [Concomitant]
     Dosage: 7.5 MG, QD
     Route: 048
     Dates: end: 20140330
  8. LOVENOX [Concomitant]
     Dosage: 0.4 ML, QD
     Route: 058
     Dates: start: 20140303
  9. ACUPAN [Concomitant]
     Dosage: UNK
     Route: 042
     Dates: start: 201401, end: 20140318
  10. SMOFKABIVEN [Concomitant]
     Dosage: 1 DF, QD
     Route: 042
     Dates: start: 20140303, end: 20140411
  11. DIFFU K [Concomitant]
     Dosage: UNK
     Route: 048
     Dates: end: 20140411
  12. MOTILIUM [Concomitant]
     Dosage: 1 DF, TID
     Route: 048
     Dates: end: 20140411

REACTIONS (7)
  - Multi-organ failure [Recovering/Resolving]
  - Rash [Recovering/Resolving]
  - Cell death [Recovering/Resolving]
  - Cholestasis [Recovering/Resolving]
  - Haemodynamic instability [Recovering/Resolving]
  - Cardiogenic shock [Recovering/Resolving]
  - Drug reaction with eosinophilia and systemic symptoms [Recovering/Resolving]
